FAERS Safety Report 6838292-1 (Version None)
Quarter: 2010Q3

REPORT INFORMATION
  Report Type: 
  Country: None (occurrence: None)
  Receive Date: 20100708
  Receipt Date: 20100628
  Transmission Date: 20110219
  Serious: Yes (Other)
  Sender: FDA-Public Use
  Company Number: WAES1007USA00282

PATIENT
  Age: 43 Year

DRUGS (3)
  1. ZETIA [Suspect]
     Indication: HYPERCHOLESTEROLAEMIA
     Dosage: 10 MG/DAILY
     Route: 048
     Dates: start: 20080115, end: 20080508
  2. AMARYL [Concomitant]
  3. VOGSEAL [Concomitant]

REACTIONS (1)
  - DIABETIC GANGRENE [None]
